FAERS Safety Report 22372522 (Version 2)
Quarter: 2023Q2

REPORT INFORMATION
  Report Type: Spontaneous
  Country: NL (occurrence: NL)
  Receive Date: 20230526
  Receipt Date: 20230626
  Transmission Date: 20230721
  Serious: Yes (Other)
  Sender: FDA-Public Use
  Company Number: NL-LRB-00870065

PATIENT
  Sex: Male
  Weight: 62 kg

DRUGS (2)
  1. ISOTRETINOIN [Interacting]
     Active Substance: ISOTRETINOIN
     Indication: Acne
     Dosage: 10 MILLIGRAM, DAILY, 2 X PER DAY 1 PIECE
     Route: 065
     Dates: start: 20230101
  2. DEXTROAMPHETAMINE SULFATE [Interacting]
     Active Substance: DEXTROAMPHETAMINE SULFATE
     Indication: Attention deficit hyperactivity disorder
     Dosage: 5 MILLIGRAM, BID, 2 X PER DAY 1 PIECE
     Route: 065
     Dates: start: 20230210

REACTIONS (3)
  - Arrhythmia [Not Recovered/Not Resolved]
  - Drug interaction [Not Recovered/Not Resolved]
  - Dizziness [Recovered/Resolved]
